FAERS Safety Report 19980746 (Version 1)
Quarter: 2021Q4

REPORT INFORMATION
  Report Type: Spontaneous
  Country: GB (occurrence: GB)
  Receive Date: 20211021
  Receipt Date: 20211021
  Transmission Date: 20220303
  Serious: Yes (Life-Threatening, Hospitalization, Other)
  Sender: FDA-Public Use
  Company Number: GB-LUPIN PHARMACEUTICALS INC.-2021-20127

PATIENT
  Age: 60 Year
  Sex: Female

DRUGS (1)
  1. MORPHINE [Suspect]
     Active Substance: MORPHINE
     Indication: Pain
     Dosage: 25 MILLIGRAM; (INTRAOPERATIVELY AND IN THE RECOVERY ROOM)
     Route: 042

REACTIONS (1)
  - Respiratory depression [Recovered/Resolved]
